FAERS Safety Report 7383714-3 (Version None)
Quarter: 2011Q1

REPORT INFORMATION
  Report Type: 
  Country: None (occurrence: None)
  Receive Date: 20110330
  Receipt Date: 20110318
  Transmission Date: 20110831
  Serious: Yes (Hospitalization)
  Sender: FDA-Public Use
  Company Number: CN-ROCHE-766593

PATIENT
  Age: 37 Year
  Sex: Male

DRUGS (4)
  1. MYCOPHENOLATE MOFETIL [Suspect]
     Indication: RENAL TRANSPLANT
     Route: 065
     Dates: start: 20040101, end: 20090128
  2. PREDNISOLONE [Suspect]
     Indication: RENAL TRANSPLANT
     Route: 065
     Dates: start: 20040101, end: 20090128
  3. TACROLIMUS [Suspect]
     Indication: RENAL TRANSPLANT
     Route: 065
     Dates: start: 20040101, end: 20090128
  4. RAPAMYCIN [Suspect]
     Indication: RENAL TRANSPLANT
     Route: 065
     Dates: start: 20071001, end: 20090128

REACTIONS (2)
  - LUNG INFECTION [None]
  - ACUTE RESPIRATORY DISTRESS SYNDROME [None]
